FAERS Safety Report 10245378 (Version 1)
Quarter: 2014Q2

REPORT INFORMATION
  Report Type: Spontaneous
  Country: SE (occurrence: SE)
  Receive Date: 20140618
  Receipt Date: 20140618
  Transmission Date: 20141212
  Serious: Yes (Other)
  Sender: FDA-Public Use
  Company Number: SE-ROCHE-1418390

PATIENT
  Age: 66 Year
  Sex: Female

DRUGS (6)
  1. ROACTEMRA [Suspect]
     Indication: RHEUMATOID ARTHRITIS
     Route: 042
     Dates: start: 20131211, end: 20140325
  2. PREDNISOLONE [Concomitant]
     Route: 065
  3. CALCICHEW [Concomitant]
     Route: 065
  4. ALVEDON [Concomitant]
     Route: 065
  5. TIMOSAN (SWEDEN) [Concomitant]
     Route: 065
  6. XALATAN [Concomitant]
     Route: 065

REACTIONS (3)
  - Keratitis [Not Recovered/Not Resolved]
  - Keratitis [Not Recovered/Not Resolved]
  - Conjunctivitis [Not Recovered/Not Resolved]
